FAERS Safety Report 16139693 (Version 1)
Quarter: 2019Q2

REPORT INFORMATION
  Report Type: Spontaneous
  Country: JP (occurrence: JP)
  Receive Date: 20190401
  Receipt Date: 20190401
  Transmission Date: 20190711
  Serious: Yes (Other)
  Sender: FDA-Public Use
  Company Number: JP-BAUSCH-BL-2019-007811

PATIENT
  Age: 60 Year
  Sex: Male

DRUGS (1)
  1. LUMICEF [Suspect]
     Active Substance: BRODALUMAB
     Indication: PSORIASIS
     Dosage: INJECTION SYRINGE 210
     Route: 058
     Dates: start: 20180817, end: 20190122

REACTIONS (2)
  - Aspergillus infection [Unknown]
  - Lung cyst [Unknown]

NARRATIVE: CASE EVENT DATE: 20190214
